FAERS Safety Report 6794102-2 (Version None)
Quarter: 2010Q2

REPORT INFORMATION
  Report Type: 
  Country: None (occurrence: None)
  Receive Date: 20100624
  Receipt Date: 20091026
  Transmission Date: 20101027
  Serious: No
  Sender: FDA-Public Use
  Company Number: US-PFIZER INC-2009245923

PATIENT
  Sex: Female
  Weight: 57.143 kg

DRUGS (1)
  1. RELPAX [Suspect]
     Indication: MIGRAINE
     Dosage: 40 MG, 2X/DAY AS NEEDED
     Dates: start: 20090425, end: 20090616

REACTIONS (3)
  - DYSPNOEA [None]
  - NECK PAIN [None]
  - OROPHARYNGEAL PAIN [None]
